APPROVED DRUG PRODUCT: FARESTON
Active Ingredient: TOREMIFENE CITRATE
Strength: EQ 60MG BASE
Dosage Form/Route: TABLET;ORAL
Application: N020497 | Product #001
Applicant: KYOWA KIRIN INC
Approved: May 29, 1997 | RLD: Yes | RS: No | Type: DISCN